FAERS Safety Report 7747458-8 (Version None)
Quarter: 2011Q3

REPORT INFORMATION
  Report Type: 
  Country: None (occurrence: None)
  Receive Date: 20110913
  Receipt Date: 20110907
  Transmission Date: 20111222
  Serious: No
  Sender: FDA-Public Use
  Company Number: US-BAYER-2011-068150

PATIENT
  Age: 49 Year
  Sex: Female
  Weight: 106.58 kg

DRUGS (3)
  1. MIRENA [Suspect]
     Indication: CONTRACEPTION
     Dosage: UNK
     Dates: start: 20090615, end: 20110712
  2. CALCIUM CARBONATE [Concomitant]
     Indication: BONE LOSS
     Dosage: UNK
     Route: 048
     Dates: start: 20090319
  3. MULTI-VITAMINS [Concomitant]
     Indication: HAEMOGLOBIN ABNORMAL
     Dosage: UNK
     Route: 048
     Dates: start: 20090319

REACTIONS (1)
  - PREGNANCY WITH CONTRACEPTIVE DEVICE [None]
